FAERS Safety Report 9725301 (Version 1)
Quarter: 2013Q4

REPORT INFORMATION
  Report Type: Spontaneous
  Country: US (occurrence: None)
  Receive Date: 20131129
  Receipt Date: 20131129
  Transmission Date: 20140711
  Serious: Yes (Other)
  Sender: FDA-Public Use
  Company Number: 2013AP010035

PATIENT
  Age: 46 Year
  Sex: Female

DRUGS (5)
  1. ATORVASTATIN [Suspect]
     Indication: HYPERCHOLESTEROLAEMIA
     Dosage: 20 MG; PO
     Route: 048
  2. HALDOL [Concomitant]
  3. ASPIRIN [Concomitant]
  4. CETFAL [Concomitant]
  5. SYNTHROID [Concomitant]

REACTIONS (4)
  - Hypersensitivity [None]
  - Fluid retention [None]
  - Swelling [None]
  - Dyspnoea [None]
